FAERS Safety Report 6101227-3 (Version None)
Quarter: 2009Q1

REPORT INFORMATION
  Report Type: 
  Country: None (occurrence: None)
  Receive Date: 20090227
  Receipt Date: 20090213
  Transmission Date: 20090719
  Serious: Yes (Hospitalization)
  Sender: FDA-Public Use
  Company Number: 238732J08USA

PATIENT
  Age: 41 Year
  Sex: Female

DRUGS (2)
  1. REBIF [Suspect]
     Indication: MULTIPLE SCLEROSIS
     Dosage: 44 MCG, 3 IN 1 WEEKS, SUBCUTANEOUS; 22 MCG, 3 IN I WEEKS, SUBCUTANEOUS
     Route: 058
     Dates: start: 20070924, end: 20080913
  2. REBIF [Suspect]
     Indication: MULTIPLE SCLEROSIS
     Dosage: 44 MCG, 3 IN 1 WEEKS, SUBCUTANEOUS; 22 MCG, 3 IN I WEEKS, SUBCUTANEOUS
     Route: 058
     Dates: start: 20080914

REACTIONS (3)
  - FALL [None]
  - HEPATIC ENZYME INCREASED [None]
  - URINARY TRACT INFECTION [None]
